FAERS Safety Report 6844852-4 (Version None)
Quarter: 2010Q3

REPORT INFORMATION
  Report Type: 
  Country: None (occurrence: None)
  Receive Date: 20100715
  Receipt Date: 20100702
  Transmission Date: 20110219
  Serious: Yes (Hospitalization)
  Sender: FDA-Public Use
  Company Number: FR-SANOFI-AVENTIS-2010SA038356

PATIENT
  Age: 81 Year
  Sex: Male

DRUGS (13)
  1. NOCERTONE [Suspect]
     Route: 048
     Dates: end: 20090825
  2. BIPROFENID [Suspect]
     Route: 048
     Dates: end: 20090825
  3. GLYBURIDE [Suspect]
     Route: 048
     Dates: end: 20090829
  4. TRIMEBUTINE [Suspect]
     Route: 048
     Dates: end: 20090825
  5. SEGLOR [Suspect]
     Route: 048
     Dates: end: 20090825
  6. BISOPROLOL [Suspect]
     Route: 048
     Dates: end: 20090825
  7. TAHOR [Suspect]
     Route: 048
     Dates: end: 20090825
  8. SKENAN [Suspect]
     Route: 048
     Dates: end: 20090908
  9. SINTROM [Concomitant]
  10. PERINDOPRIL ERBUMINE [Concomitant]
  11. ZOLPIDEM [Concomitant]
  12. ACETAMINOPHEN [Concomitant]
     Route: 048
  13. CALCIPRAT [Concomitant]
     Route: 048

REACTIONS (2)
  - FALL [None]
  - HYPOGLYCAEMIA [None]
